FAERS Safety Report 13736760 (Version 1)
Quarter: 2017Q3

REPORT INFORMATION
  Report Type: Spontaneous
  Country: None (occurrence: US)
  Receive Date: 20170708
  Receipt Date: 20170708
  Transmission Date: 20171127
  Serious: Yes (Death, Hospitalization)
  Sender: FDA-Public Use
  Company Number: None

PATIENT
  Age: 15 Year
  Sex: Female
  Weight: 72.6 kg

DRUGS (5)
  1. CYCLOPHOSPHAMIDE. [Suspect]
     Active Substance: CYCLOPHOSPHAMIDE
     Dates: end: 20170516
  2. CYTARABINE. [Suspect]
     Active Substance: CYTARABINE
     Dates: end: 20170526
  3. THIOGUANINE (6-TG) [Suspect]
     Active Substance: THIOGUANINE ANHYDROUS
     Dates: end: 20170524
  4. ONCASPAR [Suspect]
     Active Substance: PEGASPARGASE
     Dates: end: 20170530
  5. VINCRISTINE SULFATE. [Suspect]
     Active Substance: VINCRISTINE SULFATE
     Dates: end: 20170606

REACTIONS (12)
  - Multiple organ dysfunction syndrome [None]
  - Drug eruption [None]
  - Diarrhoea [None]
  - Anal fistula [None]
  - Skin exfoliation [None]
  - Febrile neutropenia [None]
  - Human rhinovirus test positive [None]
  - Fungal sepsis [None]
  - Mucosal inflammation [None]
  - Aspergillus test positive [None]
  - Enterovirus test positive [None]
  - Clostridium test positive [None]

NARRATIVE: CASE EVENT DATE: 20170630
